FAERS Safety Report 11918551 (Version 1)
Quarter: 2016Q1

REPORT INFORMATION
  Report Type: Spontaneous
  Country: AE (occurrence: US)
  Receive Date: 20160115
  Receipt Date: 20160115
  Transmission Date: 20160526
  Serious: Yes (Other)
  Sender: FDA-Public Use
  Company Number: AE-JNJFOC-20151201846

PATIENT
  Sex: Female

DRUGS (7)
  1. DROSPIRENONE [Interacting]
     Active Substance: DROSPIRENONE
     Indication: CHEMICAL CONTRACEPTION
     Route: 065
  2. TOPIRAMATE. [Suspect]
     Active Substance: TOPIRAMATE
     Indication: EPILEPSY
     Route: 048
  3. NORGESTREL [Interacting]
     Active Substance: NORGESTREL
     Indication: CHEMICAL CONTRACEPTION
     Route: 065
  4. LEVETIRACETAM. [Suspect]
     Active Substance: LEVETIRACETAM
     Indication: EPILEPSY
     Route: 065
  5. ETHINYLESTRADIOL [Interacting]
     Active Substance: ETHINYL ESTRADIOL
     Indication: CHEMICAL CONTRACEPTION
     Route: 065
  6. LAMOTRIGINE. [Suspect]
     Active Substance: LAMOTRIGINE
     Indication: EPILEPSY
     Route: 065
  7. NORETHINDRONE ACETATE. [Interacting]
     Active Substance: NORETHINDRONE ACETATE
     Indication: CHEMICAL CONTRACEPTION
     Route: 065

REACTIONS (2)
  - Seizure [Unknown]
  - Drug interaction [Unknown]
